FAERS Safety Report 7183237-0 (Version None)
Quarter: 2010Q4

REPORT INFORMATION
  Report Type: 
  Country: None (occurrence: None)
  Receive Date: 20101222
  Receipt Date: 20100505
  Transmission Date: 20110411
  Serious: No
  Sender: FDA-Public Use
  Company Number: A0852190A

PATIENT
  Age: 45 Year
  Sex: Female

DRUGS (4)
  1. FLONASE [Suspect]
     Route: 045
     Dates: start: 19950101, end: 19950101
  2. ZYRTEC [Concomitant]
  3. VERAPAMIL [Concomitant]
  4. UNKNOWN MEDICATION [Concomitant]

REACTIONS (3)
  - ABSCESS [None]
  - EPISTAXIS [None]
  - SINUSITIS [None]
